FAERS Safety Report 15431214 (Version 1)
Quarter: 2018Q3

REPORT INFORMATION
  Report Type: Spontaneous
  Country: US (occurrence: US)
  Receive Date: 20180926
  Receipt Date: 20180926
  Transmission Date: 20181010
  Serious: No
  Sender: FDA-Public Use
  Company Number: US-INDIVIOR LIMITED-INDV-108176-2018

PATIENT
  Age: 32 Year
  Sex: Male

DRUGS (8)
  1. MORPHINE [Suspect]
     Active Substance: MORPHINE
     Indication: PRODUCT USED FOR UNKNOWN INDICATION
     Dosage: UNK
     Route: 051
  2. MARIJUANA [Suspect]
     Active Substance: CANNABIS SATIVA SUBSP. INDICA TOP
     Indication: PRODUCT USED FOR UNKNOWN INDICATION
     Dosage: UNK
     Route: 065
  3. VITAMINS                           /90003601/ [Concomitant]
     Active Substance: VITAMINS
     Indication: PRODUCT USED FOR UNKNOWN INDICATION
     Dosage: UNK
     Route: 065
  4. SUBOXONE [Suspect]
     Active Substance: BUPRENORPHINE HYDROCHLORIDE\NALOXONE HYDROCHLORIDE
     Indication: DRUG DEPENDENCE
     Dosage: TWO AND HALF FILM, THROUGHOUT THE DAY
     Route: 060
  5. OXYCONTIN [Suspect]
     Active Substance: OXYCODONE HYDROCHLORIDE
     Indication: PRODUCT USED FOR UNKNOWN INDICATION
     Dosage: UNK
     Route: 051
  6. ALCOHOL. [Suspect]
     Active Substance: ALCOHOL
     Indication: PRODUCT USED FOR UNKNOWN INDICATION
     Dosage: UNK
     Route: 065
  7. HEROIN [Suspect]
     Active Substance: DIAMORPHINE
     Indication: PRODUCT USED FOR UNKNOWN INDICATION
     Dosage: UNK
     Route: 051
  8. METHAMPHETAMINE [Suspect]
     Active Substance: METHAMPHETAMINE
     Indication: PRODUCT USED FOR UNKNOWN INDICATION
     Dosage: UNK
     Route: 051

REACTIONS (14)
  - Diarrhoea [Not Recovered/Not Resolved]
  - Pre-existing condition improved [Unknown]
  - Wrong technique in product usage process [Recovered/Resolved]
  - Intentional product misuse [Recovered/Resolved]
  - Anxiety [Not Recovered/Not Resolved]
  - Drug dependence [Unknown]
  - Drug withdrawal syndrome [Not Recovered/Not Resolved]
  - Abdominal pain upper [Not Recovered/Not Resolved]
  - Asthenia [Not Recovered/Not Resolved]
  - Therapy cessation [Recovered/Resolved]
  - Abnormal behaviour [Not Recovered/Not Resolved]
  - Tremor [Not Recovered/Not Resolved]
  - Hyperhidrosis [Not Recovered/Not Resolved]
  - Malaise [Unknown]
